FAERS Safety Report 7668059-6 (Version None)
Quarter: 2011Q3

REPORT INFORMATION
  Report Type: 
  Country: None (occurrence: None)
  Receive Date: 20110808
  Receipt Date: 20110804
  Transmission Date: 20111222
  Serious: No
  Sender: FDA-Public Use
  Company Number: US-PFIZER INC-2011178675

PATIENT
  Sex: Male
  Weight: 77.098 kg

DRUGS (10)
  1. LYRICA [Suspect]
     Dosage: 50 MG, 1X/DAY
     Route: 048
     Dates: start: 20110613, end: 20110615
  2. ASPIRIN [Concomitant]
     Indication: CEREBROVASCULAR ACCIDENT
     Dosage: UNK
  3. AMITRIPTYLINE [Concomitant]
     Indication: MIGRAINE
     Dosage: UNK
  4. TOPAMAX [Concomitant]
     Indication: MIGRAINE
     Dosage: UNK
  5. DEXILANT [Concomitant]
     Indication: GASTROOESOPHAGEAL REFLUX DISEASE
     Dosage: UNK
  6. LYRICA [Suspect]
     Dosage: 50 MG, 2X/DAY
     Route: 048
     Dates: start: 20110616, end: 20110616
  7. LYRICA [Suspect]
     Dosage: 75 MG, 2X/DAY
     Route: 048
     Dates: start: 20110617, end: 20110618
  8. LIPITOR [Concomitant]
     Indication: BLOOD CHOLESTEROL INCREASED
     Dosage: UNK
  9. ZANAFLEX [Concomitant]
     Indication: MIGRAINE
     Dosage: UNK
  10. TRAMADOL [Concomitant]
     Dosage: UNK

REACTIONS (4)
  - ANGER [None]
  - ANXIETY [None]
  - MIGRAINE [None]
  - EUPHORIC MOOD [None]
